FAERS Safety Report 6559355-4 (Version None)
Quarter: 2010Q1

REPORT INFORMATION
  Report Type: 
  Country: None (occurrence: None)
  Receive Date: 20100129
  Receipt Date: 20090902
  Transmission Date: 20100710
  Serious: Yes (Hospitalization)
  Sender: FDA-Public Use
  Company Number: US-ABBOTT-09P-163-0594905-00

PATIENT
  Sex: Male
  Weight: 81.72 kg

DRUGS (2)
  1. HUMIRA [Suspect]
     Indication: RHEUMATOID ARTHRITIS
     Dates: start: 20080901, end: 20090301
  2. PROAIR HFA [Suspect]
     Indication: HYPERSENSITIVITY
     Dates: start: 20090301

REACTIONS (2)
  - HYPERSENSITIVITY [None]
  - PNEUMONIA [None]
